FAERS Safety Report 15714886 (Version 1)
Quarter: 2018Q4

REPORT INFORMATION
  Report Type: Spontaneous
  Country: US (occurrence: US)
  Receive Date: 20181212
  Receipt Date: 20181212
  Transmission Date: 20190205
  Serious: No
  Sender: FDA-Public Use
  Company Number: US-ELI_LILLY_AND_COMPANY-US201812000850

PATIENT
  Age: 23 Year
  Sex: Female

DRUGS (2)
  1. TOPAMAX [Concomitant]
     Active Substance: TOPIRAMATE
     Indication: HEADACHE
     Route: 065
  2. EMGALITY [Suspect]
     Active Substance: GALCANEZUMAB-GNLM
     Indication: MIGRAINE
     Dosage: 120 MG, UNK
     Route: 058

REACTIONS (4)
  - Visual impairment [Unknown]
  - Presyncope [Unknown]
  - Nausea [Unknown]
  - Arthropathy [Unknown]

NARRATIVE: CASE EVENT DATE: 20181203
